FAERS Safety Report 9797874 (Version 3)
Quarter: 2014Q2

REPORT INFORMATION
  Report Type: Report from Study
  Country: US (occurrence: US)
  Receive Date: 20140106
  Receipt Date: 20140623
  Transmission Date: 20141212
  Serious: No
  Sender: FDA-Public Use
  Company Number: PHEH2013US026695

PATIENT
  Sex: Female
  Weight: 64.9 kg

DRUGS (13)
  1. TASIGNA [Suspect]
     Indication: ACUTE LYMPHOCYTIC LEUKAEMIA
     Dosage: 300 MG, BID
     Route: 048
     Dates: start: 20131218
  2. TASIGNA [Suspect]
     Dosage: 150 MG, BID
     Route: 048
     Dates: start: 20131230
  3. TASIGNA [Suspect]
     Dosage: 150 MG, QD
     Route: 048
  4. PROTONIX [Concomitant]
     Dosage: UNK UKN, UNK
  5. FLAGYL [Concomitant]
     Dosage: UNK UKN, UNK
  6. PREDNISONE [Concomitant]
     Dosage: UNK UKN, UNK
  7. ACYCLOVIR [Concomitant]
     Dosage: UNK UKN, UNK
  8. SULFAMETHOXAZOL W/TRIMETOPRIM [Concomitant]
     Dosage: UNK UKN, UNK
  9. TACROLIMUS [Concomitant]
     Dosage: UNK UKN, UNK
  10. ESTRADIOL [Concomitant]
     Dosage: 0.05 MG, DAILY
  11. PROGESTERONE [Concomitant]
     Dosage: UNK UKN, UNK
  12. PERCOCET [Concomitant]
     Dosage: UNK UKN, UNK
  13. ABTEI MAGNESIUM [Concomitant]
     Dosage: UNK UKN, UNK

REACTIONS (17)
  - Clostridium difficile infection [Unknown]
  - Fungal infection [Unknown]
  - Contusion [Unknown]
  - Rash [Recovered/Resolved]
  - Chest pain [Unknown]
  - Headache [Unknown]
  - Fatigue [Unknown]
  - Constipation [Recovered/Resolved]
  - Vision blurred [Unknown]
  - Abdominal pain [Unknown]
  - Gastrooesophageal reflux disease [Unknown]
  - Gingival pain [Unknown]
  - Pain in jaw [Unknown]
  - Asthenia [Unknown]
  - Pruritus [Unknown]
  - Dizziness [Recovered/Resolved]
  - Amnesia [Unknown]
